FAERS Safety Report 5643556-3 (Version None)
Quarter: 2008Q1

REPORT INFORMATION
  Report Type: 
  Country: None (occurrence: None)
  Receive Date: 20080228
  Receipt Date: 20080218
  Transmission Date: 20080703
  Serious: Yes (Life-Threatening, Hospitalization)
  Sender: FDA-Public Use
  Company Number: GB-PFIZER INC-2006060391

PATIENT
  Age: 34 Year
  Sex: Female

DRUGS (3)
  1. SULFASALAZINE [Suspect]
     Indication: ARTHRITIS REACTIVE
     Route: 048
     Dates: start: 20060227, end: 20060331
  2. SULFASALAZINE [Suspect]
     Indication: SERONEGATIVE ARTHRITIS
  3. DICLOFENAC SODIUM [Concomitant]
     Route: 048
     Dates: start: 20051201, end: 20060411

REACTIONS (4)
  - DRUG RASH WITH EOSINOPHILIA AND SYSTEMIC SYMPTOMS [None]
  - MALAISE [None]
  - NAUSEA [None]
  - VOMITING [None]
